FAERS Safety Report 19660292 (Version 3)
Quarter: 2021Q3

REPORT INFORMATION
  Report Type: Spontaneous
  Country: US (occurrence: US)
  Receive Date: 20210805
  Receipt Date: 20210920
  Transmission Date: 20211014
  Serious: No
  Sender: FDA-Public Use
  Company Number: US-LUPIN PHARMACEUTICALS INC.-2021-13544

PATIENT
  Sex: Female
  Weight: 82 kg

DRUGS (1)
  1. TRAMADOL HYDROCHLORIDE EXTENDED?RELEASE TABLETS [Suspect]
     Active Substance: TRAMADOL HYDROCHLORIDE
     Indication: PAIN
     Dosage: 1 DOSAGE FORM, QID, EVERY 6 HOURS, AS NEEDED
     Route: 065
     Dates: start: 202008

REACTIONS (2)
  - Drug ineffective [Unknown]
  - Product residue present [Unknown]
